FAERS Safety Report 10560013 (Version 1)
Quarter: 2014Q4

REPORT INFORMATION
  Report Type: Spontaneous
  Country: US (occurrence: US)
  Receive Date: 20141103
  Receipt Date: 20141103
  Transmission Date: 20150529
  Serious: No
  Sender: FDA-Public Use
  Company Number: US-009507513-1409USA001430

PATIENT
  Age: 52 Year
  Sex: Female

DRUGS (1)
  1. CLARITIN-D 24 HOUR [Suspect]
     Active Substance: LORATADINE\PSEUDOEPHEDRINE SULFATE
     Indication: INFECTION PROPHYLAXIS
     Dosage: UNK, UNKNOWN
     Route: 048

REACTIONS (2)
  - Off label use [Unknown]
  - Initial insomnia [Unknown]
